FAERS Safety Report 5600532-4 (Version None)
Quarter: 2008Q1

REPORT INFORMATION
  Report Type: 
  Country: None (occurrence: None)
  Receive Date: 20080123
  Receipt Date: 20080114
  Transmission Date: 20080703
  Serious: Yes (Hospitalization)
  Sender: FDA-Public Use
  Company Number: FR-BOEHRINGER INGELHEIM PHARMACEUTICALS, INC.-2007-FF-01185FF

PATIENT
  Sex: Male
  Weight: 85 kg

DRUGS (2)
  1. MECIR LP 0.4 [Suspect]
     Indication: BENIGN PROSTATIC HYPERPLASIA
     Route: 048
     Dates: end: 20071215
  2. AVODART [Concomitant]
     Dates: end: 20071215

REACTIONS (9)
  - ANGIOEDEMA [None]
  - ASTHENIA [None]
  - ERYTHEMA [None]
  - GENERALISED OEDEMA [None]
  - LACRIMATION INCREASED [None]
  - PRURITUS [None]
  - RASH [None]
  - RHINITIS [None]
  - URTICARIA [None]
